FAERS Safety Report 12434192 (Version 1)
Quarter: 2016Q2

REPORT INFORMATION
  Report Type: Report from Study
  Country: AR (occurrence: AR)
  Receive Date: 20160603
  Receipt Date: 20160603
  Transmission Date: 20160815
  Serious: Yes (Life-Threatening, Other)
  Sender: FDA-Public Use
  Company Number: AR-BAYER-2016-102419

PATIENT
  Age: 66 Year
  Sex: Female

DRUGS (1)
  1. STIVARGA [Suspect]
     Active Substance: REGORAFENIB
     Indication: COLORECTAL CANCER
     Dosage: 2-3 TABLETS PER DAY
     Route: 048
     Dates: start: 20160428, end: 20160430

REACTIONS (2)
  - Vaginal haemorrhage [Recovered/Resolved with Sequelae]
  - Hypertension [Recovering/Resolving]

NARRATIVE: CASE EVENT DATE: 20160428
